FAERS Safety Report 7618936-7 (Version None)
Quarter: 2011Q3

REPORT INFORMATION
  Report Type: 
  Country: None (occurrence: None)
  Receive Date: 20110718
  Receipt Date: 20110706
  Transmission Date: 20111222
  Serious: Yes (Other)
  Sender: FDA-Public Use
  Company Number: US-PFIZER INC-2011152588

PATIENT
  Sex: Female
  Weight: 63.946 kg

DRUGS (4)
  1. PRISTIQ [Suspect]
     Dosage: 50 MG, 1X/DAY
     Route: 048
     Dates: start: 20110101, end: 20110101
  2. PRISTIQ [Suspect]
     Indication: DEPRESSION
     Dosage: 25 MG, 1X/DAY
     Route: 048
     Dates: start: 20110101, end: 20110101
  3. AMPHETAMINE [Concomitant]
     Indication: BRAIN INJURY
     Dosage: 15 MG, UNK
  4. TRAZODONE [Concomitant]
     Indication: INSOMNIA
     Dosage: 50 MG, AS NEEDED

REACTIONS (2)
  - URINARY TRACT INFECTION [None]
  - RENAL CYST [None]
